FAERS Safety Report 13497619 (Version 2)
Quarter: 2017Q2

REPORT INFORMATION
  Report Type: Spontaneous
  Country: US (occurrence: US)
  Receive Date: 20170428
  Receipt Date: 20170614
  Transmission Date: 20170830
  Serious: No
  Sender: FDA-Public Use
  Company Number: US-PFIZER INC-2017185395

PATIENT
  Age: 63 Year
  Sex: Male
  Weight: 83 kg

DRUGS (2)
  1. KERYDIN [Suspect]
     Active Substance: TAVABOROLE
     Indication: FUNGAL SKIN INFECTION
     Dosage: 1 DF ON EACH TOENAIL, 1X/DAY
     Dates: start: 2017
  2. KERYDIN [Suspect]
     Active Substance: TAVABOROLE
     Dosage: UNK (ON TOENAIL )
     Route: 061

REACTIONS (3)
  - Ear infection [Unknown]
  - Tinnitus [Not Recovered/Not Resolved]
  - Hyperacusis [Unknown]

NARRATIVE: CASE EVENT DATE: 2017
